FAERS Safety Report 19223778 (Version 1)
Quarter: 2021Q2

REPORT INFORMATION
  Report Type: Spontaneous
  Country: US (occurrence: US)
  Receive Date: 20210506
  Receipt Date: 20210506
  Transmission Date: 20210717
  Serious: No
  Sender: FDA-Public Use
  Company Number: US-009507513-2105USA000502

PATIENT
  Age: 62 Year
  Sex: Female

DRUGS (6)
  1. CX?024414. [Suspect]
     Active Substance: CX-024414
     Dosage: UNK
     Dates: start: 20210315
  2. KEYTRUDA [Suspect]
     Active Substance: PEMBROLIZUMAB
     Indication: LUNG NEOPLASM MALIGNANT
     Dosage: 200 MILLIGRAM, EVERY 3 WEEKS
     Route: 042
     Dates: start: 201906
  3. CX?024414. [Suspect]
     Active Substance: CX-024414
     Indication: PROPHYLAXIS
     Dosage: UNK
     Dates: start: 20210215
  4. CLARITIN [Concomitant]
     Active Substance: LORATADINE
     Dosage: UNK
  5. KEYTRUDA [Suspect]
     Active Substance: PEMBROLIZUMAB
     Dosage: 400 MILLIGRAM, EVERY 6 WEEKS
     Route: 042
     Dates: end: 202101
  6. KEYTRUDA [Suspect]
     Active Substance: PEMBROLIZUMAB
     Dosage: 200 MILLIGRAM, EVERY 3 WEEKS
     Route: 042
     Dates: start: 202101

REACTIONS (7)
  - Nausea [Recovering/Resolving]
  - Weight decreased [Recovering/Resolving]
  - Pruritus [Not Recovered/Not Resolved]
  - Exercise tolerance decreased [Recovering/Resolving]
  - Fatigue [Recovering/Resolving]
  - Dyspnoea [Recovering/Resolving]
  - Decreased appetite [Recovering/Resolving]

NARRATIVE: CASE EVENT DATE: 20210212
